FAERS Safety Report 8298862-3 (Version None)
Quarter: 2012Q2

REPORT INFORMATION
  Report Type: 
  Country: None (occurrence: None)
  Receive Date: 20120419
  Receipt Date: 20120417
  Transmission Date: 20120825
  Serious: Yes (Other)
  Sender: FDA-Public Use
  Company Number: US-PFIZER INC-2012026005

PATIENT
  Sex: Female

DRUGS (4)
  1. TOPROL-XL [Concomitant]
     Dosage: 200 MG, 2X/DAY
     Dates: start: 20090101
  2. VENTOLIN [Concomitant]
     Indication: DYSPNOEA
     Dosage: 10% ONCE EVERY FOUR HOURS
  3. NEURONTIN [Suspect]
     Dosage: 100 MG, 3X/DAY
     Route: 048
     Dates: start: 20080101
  4. BACTRIM DS [Concomitant]
     Dosage: 800-160  TWICE DAILY

REACTIONS (3)
  - INFECTION [None]
  - MENINGITIS [None]
  - MENISCUS LESION [None]
